FAERS Safety Report 23204524 (Version 2)
Quarter: 2023Q4

REPORT INFORMATION
  Report Type: Spontaneous
  Country: HU (occurrence: HU)
  Receive Date: 20231120
  Receipt Date: 20231121
  Transmission Date: 20240110
  Serious: Yes (Other)
  Sender: FDA-Public Use
  Company Number: HU-002147023-NVSC2023HU243783

PATIENT
  Age: 66 Year
  Sex: Male

DRUGS (14)
  1. VOTRIENT [Suspect]
     Active Substance: PAZOPANIB HYDROCHLORIDE
     Indication: Product used for unknown indication
     Dosage: 400 MG, QD
     Route: 065
     Dates: start: 20221222, end: 20230109
  2. VOTRIENT [Suspect]
     Active Substance: PAZOPANIB HYDROCHLORIDE
     Dosage: UNK
     Route: 065
     Dates: start: 20230302, end: 20230320
  3. VOTRIENT [Suspect]
     Active Substance: PAZOPANIB HYDROCHLORIDE
     Dosage: UNK
     Route: 065
     Dates: start: 20230420, end: 20230510
  4. VOTRIENT [Suspect]
     Active Substance: PAZOPANIB HYDROCHLORIDE
     Dosage: 1 DOSAGE FORM, QD (BUT BREAKS EVERY THREE DAYS)
     Route: 065
     Dates: start: 202307
  5. ELTROMBOPAG OLAMINE [Suspect]
     Active Substance: ELTROMBOPAG OLAMINE
     Indication: Product used for unknown indication
     Dosage: UNK
     Route: 065
     Dates: start: 20230321
  6. ELTROMBOPAG OLAMINE [Suspect]
     Active Substance: ELTROMBOPAG OLAMINE
     Dosage: 100 MG
     Route: 065
     Dates: start: 202307, end: 202310
  7. VENETOCLAX [Concomitant]
     Active Substance: VENETOCLAX
     Indication: Product used for unknown indication
     Dosage: 400 MG
     Route: 065
     Dates: start: 20230321
  8. VENETOCLAX [Concomitant]
     Active Substance: VENETOCLAX
     Dosage: 400 MG
     Route: 065
     Dates: start: 20230424
  9. VENETOCLAX [Concomitant]
     Active Substance: VENETOCLAX
     Dosage: 400 MG
     Route: 065
     Dates: start: 20230602
  10. VENETOCLAX [Concomitant]
     Active Substance: VENETOCLAX
     Dosage: 400 MG
     Route: 065
     Dates: start: 202307, end: 202310
  11. AZACITIDINE [Concomitant]
     Active Substance: AZACITIDINE
     Indication: Product used for unknown indication
     Dosage: 100 MG
     Route: 065
     Dates: start: 20230321
  12. AZACITIDINE [Concomitant]
     Active Substance: AZACITIDINE
     Dosage: 100 MG
     Route: 065
     Dates: start: 20230424
  13. AZACITIDINE [Concomitant]
     Active Substance: AZACITIDINE
     Dosage: 100 MG
     Route: 065
     Dates: start: 20230602
  14. AZACITIDINE [Concomitant]
     Active Substance: AZACITIDINE
     Dosage: 100 MG
     Route: 065
     Dates: start: 202307, end: 202310

REACTIONS (5)
  - Bone marrow failure [Recovered/Resolved]
  - Thrombocytopenia [Recovered/Resolved]
  - Marrow hyperplasia [Recovered/Resolved]
  - Gene mutation [Unknown]
  - Off label use [Unknown]

NARRATIVE: CASE EVENT DATE: 20230101
